APPROVED DRUG PRODUCT: OXYBUTYNIN CHLORIDE
Active Ingredient: OXYBUTYNIN CHLORIDE
Strength: 10% (100MG/PACKET)
Dosage Form/Route: GEL;TRANSDERMAL
Application: A207329 | Product #001
Applicant: CHARTWELL RX SCIENCES LLC
Approved: May 31, 2018 | RLD: No | RS: No | Type: DISCN